FAERS Safety Report 9690618 (Version 1)
Quarter: 2013Q4

REPORT INFORMATION
  Report Type: Spontaneous
  Country: US (occurrence: None)
  Receive Date: 20131114
  Receipt Date: 20131114
  Transmission Date: 20140711
  Serious: No
  Sender: FDA-Public Use
  Company Number: None

PATIENT
  Age: 57 Year
  Sex: Male
  Weight: 72.58 kg

DRUGS (1)
  1. TOBRAMYCIN/DEXAMETHASONE [Suspect]
     Indication: EYE INFECTION BACTERIAL
     Dosage: 1 DROP ONCE DAILY INTO THE EYE
     Route: 047
     Dates: start: 20131108, end: 20131112

REACTIONS (4)
  - Throat irritation [None]
  - Insomnia [None]
  - Dysgeusia [None]
  - Lymphadenopathy [None]
